FAERS Safety Report 5280460-7 (Version None)
Quarter: 2007Q1

REPORT INFORMATION
  Report Type: 
  Country: None (occurrence: None)
  Receive Date: 20061221
  Receipt Date: 20061116
  Transmission Date: 20070707
  Serious: No
  Sender: FDA-Public Use
  Company Number: SP01031

PATIENT
  Age: 92 Year
  Sex: Female
  Weight: 54.4316 kg

DRUGS (4)
  1. XIFAXAN [Suspect]
     Indication: HEPATIC ENCEPHALOPATHY
     Dosage: 200 MG/DAY, ORAL
     Route: 048
     Dates: start: 20061101
  2. SPIRONOLACTONE [Concomitant]
  3. FOLIC ACID [Concomitant]
  4. PROTONIX [Concomitant]

REACTIONS (2)
  - FREQUENT BOWEL MOVEMENTS [None]
  - POLLAKIURIA [None]
